FAERS Safety Report 8101868 (Version 2)
Quarter: 2013Q3

REPORT INFORMATION
  Report Type: Report from Study
  Country: US (occurrence: US)
  Receive Date: 20110823
  Receipt Date: 20130701
  Transmission Date: 20140515
  Serious: Yes (Hospitalization)
  Sender: FDA-Public Use
  Company Number: PHHO2011US14006

PATIENT
  Age: 70 Year
  Sex: Male
  Weight: 89.34 kg

DRUGS (2)
  1. NO TREATMENT RECEIVED [Suspect]
     Indication: GOUTY ARTHRITIS
     Dosage: NO TREATMENT
  2. METOPROLOL AND HYDROCHLOROTHIAZIDE [Concomitant]
     Indication: HYPERTENSION
     Dosage: 1 TAB, BID
     Route: 048
     Dates: start: 2009

REACTIONS (1)
  - Haemorrhage [Recovering/Resolving]
